FAERS Safety Report 15471795 (Version 1)
Quarter: 2018Q4

REPORT INFORMATION
  Report Type: Spontaneous
  Country: GB (occurrence: GB)
  Receive Date: 20181008
  Receipt Date: 20181008
  Transmission Date: 20190205
  Serious: Yes (Other)
  Sender: FDA-Public Use
  Company Number: GB-TEVA-2007B-04432

PATIENT
  Age: 10 Year
  Sex: Female

DRUGS (4)
  1. CYCLOSPORINE (UNKNOWN) [Suspect]
     Active Substance: CYCLOSPORINE
     Indication: RENAL TRANSPLANT
     Dosage: DOSE REDUCED AND THEN WITHDRAWN
     Route: 065
  2. PREDNISOLONE (UNKNOWN) [Suspect]
     Active Substance: PREDNISOLONE
     Indication: RENAL TRANSPLANT
     Route: 065
  3. ANTILYMPHOCYTE GLOBULIN [Suspect]
     Active Substance: THYMOCYTE IMMUNE GLOBULIN NOS
     Indication: RENAL TRANSPLANT
     Dosage: SINGLE PRE-TRANSPLANT DOSE
  4. AZATHIOPRINE (UNKNOWN) [Suspect]
     Active Substance: AZATHIOPRINE
     Indication: RENAL TRANSPLANT
     Dosage: DRUG WAS WITHDRAWN AND RESTARTED ON AN UNKNOWN DATE
     Route: 065

REACTIONS (14)
  - Tooth disorder [Recovered/Resolved]
  - Paraesthesia oral [Recovered/Resolved]
  - Osteolysis [Recovered/Resolved]
  - Gingival swelling [Recovered/Resolved]
  - Mouth ulceration [Recovered/Resolved]
  - Cushingoid [Recovered/Resolved]
  - Tonsillitis [Recovered/Resolved]
  - Kidney transplant rejection [Recovered/Resolved]
  - Lymphoproliferative disorder [Recovered/Resolved]
  - Eyelid disorder [Recovered/Resolved]
  - Epstein-Barr virus infection [Recovered/Resolved]
  - Mass [Recovered/Resolved]
  - Gingival hypertrophy [Unknown]
  - Tonsillectomy [Recovered/Resolved]
